FAERS Safety Report 24400845 (Version 2)
Quarter: 2024Q4

REPORT INFORMATION
  Report Type: Spontaneous
  Country: US (occurrence: US)
  Receive Date: 20241006
  Receipt Date: 20241119
  Transmission Date: 20250114
  Serious: No
  Sender: SANOFI AVENTIS
  Company Number: US-SA-2024SA283726

PATIENT
  Age: 40 Year
  Sex: Female

DRUGS (3)
  1. DUPIXENT [Suspect]
     Active Substance: DUPILUMAB
     Indication: Dermatitis atopic
     Dosage: 300 MG, QOW
     Route: 058
  2. COLLAGEN [Concomitant]
     Active Substance: COLLAGEN
     Dosage: UNK
  3. HERBALS [Concomitant]
     Active Substance: HERBALS
     Dosage: UNK

REACTIONS (2)
  - Dry skin [Unknown]
  - Injection site erythema [Recovered/Resolved]
